FAERS Safety Report 4399838-9 (Version None)
Quarter: 2004Q3

REPORT INFORMATION
  Report Type: 
  Country: None (occurrence: None)
  Receive Date: 20040714
  Receipt Date: 20040625
  Transmission Date: 20050211
  Serious: Yes (Hospitalization)
  Sender: FDA-Public Use
  Company Number: DE_040613867

PATIENT
  Age: 74 Year
  Sex: Female

DRUGS (1)
  1. GEMZAR [Suspect]
     Indication: BILE DUCT CANCER
     Dosage: 1000 MG/M2
     Dates: end: 20040615

REACTIONS (9)
  - BLOOD PRESSURE SYSTOLIC INCREASED [None]
  - DYSPNOEA [None]
  - HAEMATURIA [None]
  - LEFT VENTRICULAR FAILURE [None]
  - MICROANGIOPATHIC HAEMOLYTIC ANAEMIA [None]
  - PLATELET COUNT DECREASED [None]
  - PULMONARY OEDEMA [None]
  - RENAL IMPAIRMENT [None]
  - TRANSAMINASES INCREASED [None]
